FAERS Safety Report 12134655 (Version 2)
Quarter: 2016Q1

REPORT INFORMATION
  Report Type: Spontaneous
  Country: US (occurrence: US)
  Receive Date: 20160301
  Receipt Date: 20160323
  Transmission Date: 20160526
  Serious: Yes (Hospitalization, Other)
  Sender: FDA-Public Use
  Company Number: US-ALKERMES INC.-ALK-2016-000451

PATIENT

DRUGS (2)
  1. VIVITROL [Suspect]
     Active Substance: NALTREXONE
     Indication: ALCOHOLISM
     Dosage: 380 MG, QMO
     Route: 030
  2. VIVITROL [Suspect]
     Active Substance: NALTREXONE
     Indication: ALCOHOLISM

REACTIONS (12)
  - Emotional distress [Unknown]
  - Injection site swelling [Recovered/Resolved]
  - Injection site discolouration [Recovered/Resolved]
  - Pyrexia [Recovered/Resolved]
  - Drug administration error [Recovered/Resolved]
  - Alcoholism [Recovered/Resolved]
  - Injection site pain [Recovered/Resolved]
  - Wound [Recovered/Resolved]
  - Muscle atrophy [Unknown]
  - Injection site reaction [Recovered/Resolved]
  - Neuropathy peripheral [Unknown]
  - Pain [Unknown]
